FAERS Safety Report 21165474 (Version 1)
Quarter: 2022Q3

REPORT INFORMATION
  Report Type: Report from Study
  Country: US (occurrence: US)
  Receive Date: 20220803
  Receipt Date: 20220803
  Transmission Date: 20221027
  Serious: Yes (Other)
  Sender: FDA-Public Use
  Company Number: US-BRISTOL-MYERS SQUIBB COMPANY-2022-083400

PATIENT
  Age: 66 Year
  Sex: Male
  Weight: 85.68 kg

DRUGS (1)
  1. REVLIMID [Suspect]
     Active Substance: LENALIDOMIDE
     Indication: Plasma cell myeloma
     Dosage: FREQ: ON DAYS 1-21 DAYS EVERY 28 DAYS CYCLE
     Route: 048

REACTIONS (1)
  - Hepatic steatosis [Unknown]

NARRATIVE: CASE EVENT DATE: 20220701
